FAERS Safety Report 8331575-8 (Version None)
Quarter: 2012Q2

REPORT INFORMATION
  Report Type: 
  Country: None (occurrence: None)
  Receive Date: 20120502
  Receipt Date: 20120419
  Transmission Date: 20120825
  Serious: No
  Sender: FDA-Public Use
  Company Number: US-AMGEN-USASP2012025121

PATIENT
  Age: 57 Year
  Sex: Male

DRUGS (28)
  1. MS CONTIN [Concomitant]
     Dosage: 6 MG, UNK
  2. CLONIDINE [Concomitant]
     Dosage: UNK MG, UNK
  3. LEXAPRO [Concomitant]
     Dosage: 1 MG, UNK
  4. DILANTIN [Concomitant]
     Dosage: 1 MG, UNK
  5. AMITRIPTYLINE HCL [Concomitant]
     Dosage: 1 MG, UNK
  6. HYDRALAZINE HCL [Concomitant]
     Dosage: 3 MG, UNK
  7. KLOR-CON [Concomitant]
     Dosage: 1 UNK, UNK
  8. LACTULOSE [Concomitant]
     Dosage: 1 G, UNK
  9. TRAZODONE HCL [Concomitant]
     Dosage: 1 MG, UNK
  10. FLOMAX [Concomitant]
     Dosage: 1 MG, UNK
  11. METOPROLOL TARTRATE [Concomitant]
     Dosage: 1 MG, UNK
  12. ANAGRELIDE HCL [Concomitant]
     Dosage: 1 MG, UNK
  13. PERCOCET [Concomitant]
     Dosage: 6 MG, UNK
  14. NEXIUM                             /01479303/ [Concomitant]
     Dosage: 1 MG, UNK
  15. PREDNISONE [Concomitant]
     Dosage: 1 MG, UNK
  16. SYNTHROID [Concomitant]
     Dosage: 1 MUG, UNK
  17. TESTIM [Concomitant]
     Dosage: 1 MG, UNK
  18. NORVASC [Concomitant]
     Dosage: 1 MG, UNK
  19. ENBREL [Suspect]
     Indication: RHEUMATOID ARTHRITIS
     Dosage: 50 MG, QWK
     Dates: start: 20120401
  20. VITAMIN D                          /00318501/ [Concomitant]
     Dosage: 1 IU, UNK
  21. LASIX [Concomitant]
     Dosage: 1 MG, UNK
  22. ALLOPURINOL [Concomitant]
     Dosage: 1 MG, UNK
  23. REGLAN [Concomitant]
     Dosage: 1 MG, UNK
  24. PRAMIPEXOLE DIHYDROCHLORIDE [Concomitant]
     Dosage: 1 MG, UNK
  25. TRADJENTA [Concomitant]
     Dosage: 1 MG, UNK
  26. VERAPAMIL [Concomitant]
     Dosage: UNK MG, UNK
  27. KLONOPIN [Concomitant]
     Dosage: 1 MG, UNK
  28. VITAMIN B6 [Concomitant]
     Dosage: 1 MG, UNK

REACTIONS (5)
  - DYSPNOEA [None]
  - CHEST PAIN [None]
  - LETHARGY [None]
  - WHEEZING [None]
  - ELECTROCARDIOGRAM ABNORMAL [None]
